FAERS Safety Report 6177418-2 (Version None)
Quarter: 2009Q2

REPORT INFORMATION
  Report Type: 
  Country: None (occurrence: None)
  Receive Date: 20090504
  Receipt Date: 20090427
  Transmission Date: 20091009
  Serious: Yes (Other)
  Sender: FDA-Public Use
  Company Number: US-BAYER-200914389NA

PATIENT
  Age: 24 Year
  Sex: Female
  Weight: 59 kg

DRUGS (3)
  1. MIRENA [Suspect]
     Indication: CONTRACEPTION
     Dosage: CONTINUOUS
     Route: 015
     Dates: start: 20090123, end: 20090213
  2. SYNTHROID [Concomitant]
     Indication: HYPOTHYROIDISM
     Dosage: 0.125
     Route: 048
  3. CLARINEX D [Concomitant]
     Indication: HYPERSENSITIVITY
     Dosage: 250/5
     Route: 048

REACTIONS (2)
  - ABDOMINAL PAIN LOWER [None]
  - URINARY RETENTION [None]
